FAERS Safety Report 4485248-2 (Version None)
Quarter: 2004Q4

REPORT INFORMATION
  Report Type: 
  Country: None (occurrence: None)
  Receive Date: 20041021
  Receipt Date: 20041021
  Transmission Date: 20050328
  Serious: Yes (Hospitalization)
  Sender: FDA-Public Use
  Company Number: None

PATIENT
  Age: 52 Year
  Sex: Female

DRUGS (2)
  1. METHIMAZOLE [Suspect]
     Indication: HYPERTHYROIDISM
  2. PROPRANOLOL [Suspect]
     Indication: HYPERTHYROIDISM

REACTIONS (5)
  - ATRIAL FIBRILLATION [None]
  - CHEST DISCOMFORT [None]
  - DYSPNOEA [None]
  - PALPITATIONS [None]
  - RASH [None]
